FAERS Safety Report 5297272-0 (Version None)
Quarter: 2007Q2

REPORT INFORMATION
  Report Type: 
  Country: None (occurrence: None)
  Receive Date: 20070416
  Receipt Date: 20070411
  Transmission Date: 20071010
  Serious: Yes (Death, Hospitalization, Disabling)
  Sender: FDA-Public Use
  Company Number: BE-ELI_LILLY_AND_COMPANY-BE200611005451

PATIENT
  Age: 50 Year
  Sex: Male

DRUGS (2)
  1. GEMZAR [Suspect]
     Indication: NON-SMALL CELL LUNG CANCER
     Dosage: 1200 MG/M2, UNK
     Route: 042
     Dates: start: 20050726, end: 20050816
  2. CISPLATIN [Concomitant]
     Indication: NON-SMALL CELL LUNG CANCER
     Dosage: 80 MG/M2, OTHER
     Route: 042
     Dates: start: 20050726, end: 20050816

REACTIONS (2)
  - ILIAC ARTERY OCCLUSION [None]
  - MALIGNANT NEOPLASM PROGRESSION [None]
